FAERS Safety Report 4344416-0 (Version None)
Quarter: 2004Q2

REPORT INFORMATION
  Report Type: 
  Country: None (occurrence: None)
  Receive Date: 20040419
  Receipt Date: 19990120
  Transmission Date: 20050107
  Serious: Yes (Death, Life-Threatening, Other)
  Sender: FDA-Public Use
  Company Number: WAES 99021015

PATIENT
  Age: 4 Day
  Sex: Male

DRUGS (4)
  1. INDOCIN I.V. [Suspect]
     Indication: PATENT DUCTUS ARTERIOSUS
     Dosage: SEE IMAGE
     Route: 042
     Dates: start: 19981204, end: 19981204
  2. INDOCIN I.V. [Suspect]
     Indication: PATENT DUCTUS ARTERIOSUS
     Dosage: SEE IMAGE
     Route: 042
     Dates: start: 19981205, end: 19981205
  3. DOBUTAMINE HCL [Concomitant]
  4. DOPAMINE HCL [Concomitant]

REACTIONS (10)
  - HAEMATOCRIT DECREASED [None]
  - HAEMOGLOBIN DECREASED [None]
  - NEONATAL RESPIRATORY FAILURE [None]
  - PERITONEAL DIALYSIS [None]
  - PULMONARY HAEMORRHAGE [None]
  - RENAL FAILURE [None]
  - SEPSIS NEONATAL [None]
  - STAPHYLOCOCCAL INFECTION [None]
  - THROMBOCYTOPENIA NEONATAL [None]
  - WHITE BLOOD CELL COUNT DECREASED [None]
